FAERS Safety Report 9934772 (Version 1)
Quarter: 2014Q1

REPORT INFORMATION
  Report Type: Spontaneous
  Country: US (occurrence: US)
  Receive Date: 20140228
  Receipt Date: 20140228
  Transmission Date: 20141002
  Serious: Yes (Other)
  Sender: FDA-Public Use
  Company Number: US-GLAXOSMITHKLINE-A1061709A

PATIENT
  Age: 72 Year
  Sex: Female

DRUGS (13)
  1. ADVAIR [Suspect]
     Indication: CHRONIC OBSTRUCTIVE PULMONARY DISEASE
     Dosage: 1PUFF PER DAY
     Route: 055
  2. LEVOTHYROXINE [Concomitant]
  3. LIOTHYRONINE [Concomitant]
  4. GABAPENTIN [Concomitant]
  5. POLYETHYLENE GLYCOL [Concomitant]
  6. PROMETHAZINE [Concomitant]
  7. METAXALONE [Concomitant]
  8. SPIRIVA [Concomitant]
  9. PATANASE [Concomitant]
  10. PRO-AIR [Concomitant]
  11. AMIODARONE [Concomitant]
  12. APIXABAN [Concomitant]
  13. BABY ASPIRIN [Concomitant]

REACTIONS (9)
  - Macular degeneration [Unknown]
  - Joint dislocation [Unknown]
  - Fall [Unknown]
  - Cataract [Unknown]
  - Impaired driving ability [Not Recovered/Not Resolved]
  - Arthritis [Unknown]
  - Arthralgia [Not Recovered/Not Resolved]
  - Visual impairment [Unknown]
  - Cataract operation [Unknown]
